FAERS Safety Report 5476386-6 (Version None)
Quarter: 2007Q4

REPORT INFORMATION
  Report Type: 
  Country: None (occurrence: None)
  Receive Date: 20071003
  Receipt Date: 20070921
  Transmission Date: 20080405
  Serious: Yes (Disabling, Other)
  Sender: FDA-Public Use
  Company Number: GB-PFIZER INC-2007079414

PATIENT
  Age: 53 Year
  Sex: Female

DRUGS (1)
  1. CHAMPIX [Suspect]
     Route: 048
     Dates: start: 20070815, end: 20070819

REACTIONS (3)
  - AMNESIA [None]
  - FEELING DRUNK [None]
  - INTENTIONAL DRUG MISUSE [None]
